FAERS Safety Report 5490538-0 (Version None)
Quarter: 2007Q4

REPORT INFORMATION
  Report Type: 
  Country: None (occurrence: None)
  Receive Date: 20071019
  Receipt Date: 20071016
  Transmission Date: 20080405
  Serious: Yes (Other)
  Sender: FDA-Public Use
  Company Number: GB-BRISTOL-MYERS SQUIBB COMPANY-13944764

PATIENT

DRUGS (1)
  1. COAPROVEL [Suspect]
     Route: 048

REACTIONS (1)
  - DYSPHAGIA [None]
